FAERS Safety Report 6796016-0 (Version None)
Quarter: 2010Q2

REPORT INFORMATION
  Report Type: 
  Country: None (occurrence: None)
  Receive Date: 20100625
  Receipt Date: 20100615
  Transmission Date: 20101027
  Serious: Yes (Hospitalization)
  Sender: FDA-Public Use
  Company Number: FR-JNJFOC-20100605248

PATIENT
  Age: 56 Year
  Sex: Male

DRUGS (7)
  1. REMICADE [Suspect]
     Indication: DRUG USE FOR UNKNOWN INDICATION
     Dosage: 4TH INFUSION
     Route: 042
  2. REMICADE [Suspect]
     Dosage: 2ND INFUSION
     Route: 042
  3. REMICADE [Suspect]
     Dosage: 3RD INFUSION
     Route: 042
  4. REMICADE [Suspect]
     Dosage: 1ST INFUSION
     Route: 042
  5. METOJECT [Concomitant]
     Indication: PSORIASIS
  6. PEGASYS [Concomitant]
     Indication: HEPATITIS C
  7. COPEGUS [Concomitant]
     Indication: HEPATITIS C

REACTIONS (1)
  - DISSEMINATED TUBERCULOSIS [None]
